FAERS Safety Report 14641223 (Version 1)
Quarter: 2018Q1

REPORT INFORMATION
  Report Type: Spontaneous
  Country: FR (occurrence: FR)
  Receive Date: 20180315
  Receipt Date: 20180315
  Transmission Date: 20180509
  Serious: Yes (Hospitalization, Other)
  Sender: FDA-Public Use
  Company Number: FR-BRISTOL-MYERS SQUIBB COMPANY-BMS-2018-022996

PATIENT
  Age: 69 Year
  Sex: Male
  Weight: 56 kg

DRUGS (1)
  1. OPDIVO [Suspect]
     Active Substance: NIVOLUMAB
     Indication: CLEAR CELL RENAL CELL CARCINOMA
     Dosage: 170 MG, Q2WK
     Route: 041
     Dates: start: 20170731, end: 20171108

REACTIONS (3)
  - Pericardial effusion [Recovered/Resolved]
  - Pleural effusion [Recovered/Resolved]
  - Oedema peripheral [Recovered/Resolved]

NARRATIVE: CASE EVENT DATE: 20170925
